FAERS Safety Report 8020158-5 (Version None)
Quarter: 2011Q4

REPORT INFORMATION
  Report Type: 
  Country: None (occurrence: None)
  Receive Date: 20111228
  Receipt Date: 20111219
  Transmission Date: 20120403
  Serious: Yes (Hospitalization)
  Sender: FDA-Public Use
  Company Number: 1144410

PATIENT
  Age: 49 Year
  Sex: Female

DRUGS (7)
  1. INNOHEP [Concomitant]
  2. (SOLUPRED/00016201/) [Concomitant]
  3. OXYCODONE HCL [Suspect]
     Indication: PRODUCT USED FOR UNKNOWN INDICATION
     Dosage: 5 MG CAPSULE, ORAL
     Route: 048
     Dates: start: 20110831
  4. OXYCONTIN [Suspect]
     Indication: PRODUCT USED FOR UNKNOWN INDICATION
     Dosage: 20 MILLIGRAM(S), 1 DAY, ORAL
     Route: 048
     Dates: start: 20110831
  5. DOCETAXEL [Suspect]
     Indication: ADENOCARCINOMA
     Dosage: INTRAVENOUS (NOT OTHERWISE SPECIFIED)
     Route: 042
     Dates: start: 20111102
  6. DOCETAXEL [Suspect]
     Indication: ADENOCARCINOMA
     Dosage: INTRAVENOUS (NOT OTHERWISE SPECIFIED)
     Route: 042
     Dates: start: 20111011
  7. METOPROLOL TARTRATE [Concomitant]

REACTIONS (2)
  - CONSTIPATION [None]
  - URINARY RETENTION [None]
